FAERS Safety Report 8906852 (Version 3)
Quarter: 2013Q1

REPORT INFORMATION
  Report Type: Spontaneous
  Country: US (occurrence: US)
  Receive Date: 20121114
  Receipt Date: 20130221
  Transmission Date: 20140127
  Serious: Yes (Death, Hospitalization, Other)
  Sender: FDA-Public Use
  Company Number: US-ELI_LILLY_AND_COMPANY-US201211001552

PATIENT
  Sex: Female

DRUGS (2)
  1. FORTEO [Suspect]
     Indication: OSTEOPOROSIS
     Dosage: 20 UG, QD
     Dates: start: 201207
  2. FORTEO [Suspect]
     Dosage: 20 UG, QD

REACTIONS (6)
  - Death [Fatal]
  - Incision site infection [Unknown]
  - Thrombosis [Unknown]
  - Fall [Unknown]
  - Myalgia [Unknown]
  - Contusion [Unknown]
